FAERS Safety Report 8858808 (Version 1)
Quarter: 2012Q4

REPORT INFORMATION
  Report Type: Spontaneous
  Country: US (occurrence: None)
  Receive Date: 20121023
  Receipt Date: 20121023
  Transmission Date: 20130627
  Serious: Yes (Other)
  Sender: FDA-Public Use
  Company Number: None

PATIENT
  Age: 72 Year
  Sex: Male
  Weight: 90.72 kg

DRUGS (1)
  1. FLUTICASONE PROPIONATE [Suspect]
     Indication: NASAL POLYP
     Dosage: 2 SPRAYS PER NOSTRIL  ONCE A DAY Nasal
     Dates: start: 20110101, end: 20120801

REACTIONS (3)
  - Ageusia [None]
  - Anosmia [None]
  - Infection [None]
